FAERS Safety Report 5927203-9 (Version None)
Quarter: 2008Q4

REPORT INFORMATION
  Report Type: 
  Country: None (occurrence: None)
  Receive Date: 20081022
  Receipt Date: 20081010
  Transmission Date: 20090506
  Serious: Yes (Other)
  Sender: FDA-Public Use
  Company Number: JP-PFIZER INC-2008081401

PATIENT
  Age: 52 Year
  Sex: Female
  Weight: 47 kg

DRUGS (20)
  1. REVATIO [Suspect]
     Indication: PULMONARY HYPERTENSION
     Dates: start: 20080920
  2. DIGOSIN [Suspect]
     Indication: RIGHT VENTRICULAR FAILURE
     Route: 048
     Dates: end: 20080920
  3. TRACLEER [Concomitant]
     Route: 048
  4. FLOLAN [Concomitant]
     Route: 042
  5. LEVOTHYROXINE SODIUM [Concomitant]
     Route: 048
  6. ALFAROL [Concomitant]
     Route: 048
  7. LASIX [Concomitant]
     Route: 048
  8. BIO THREE [Concomitant]
     Route: 048
  9. OMEPRAZOLE [Concomitant]
     Route: 048
  10. MUCOSOLVAN [Concomitant]
     Route: 048
  11. HOKUNALIN [Concomitant]
  12. BAKTAR [Concomitant]
     Route: 048
  13. CRESTOR [Concomitant]
     Route: 048
  14. PREDONINE [Concomitant]
     Route: 048
  15. CINAL [Concomitant]
     Route: 048
  16. ALENDRONATE SODIUM [Concomitant]
     Route: 048
  17. MAGNESIUM OXIDE [Concomitant]
     Route: 048
  18. ALL OTHER THERAPEUTIC PRODUCTS [Concomitant]
  19. DOPAMINE HYDROCHLORIDE [Concomitant]
     Route: 042
  20. DOBUTAMINE HYDROCHLORIDE [Concomitant]
     Route: 042

REACTIONS (5)
  - ATRIOVENTRICULAR BLOCK [None]
  - BRADYARRHYTHMIA [None]
  - DYSPNOEA [None]
  - HOT FLUSH [None]
  - NAUSEA [None]
